FAERS Safety Report 6012315-4 (Version None)
Quarter: 2008Q4

REPORT INFORMATION
  Report Type: 
  Country: None (occurrence: None)
  Receive Date: 20081218
  Receipt Date: 20081114
  Transmission Date: 20090506
  Serious: No
  Sender: FDA-Public Use
  Company Number: US-ASTRAZENECA-2008UW25643

PATIENT
  Age: 41 Year
  Sex: Female

DRUGS (5)
  1. SYMBICORT [Suspect]
     Dosage: 160/4.5
     Route: 055
  2. NASONEX [Concomitant]
  3. QVAR 40 [Concomitant]
  4. NEXIUM [Concomitant]
     Route: 048
  5. CLARITIN [Concomitant]

REACTIONS (1)
  - TREMOR [None]
